FAERS Safety Report 18201087 (Version 2)
Quarter: 2020Q3

REPORT INFORMATION
  Report Type: Spontaneous
  Country: US (occurrence: US)
  Receive Date: 20200827
  Receipt Date: 20200905
  Transmission Date: 20201103
  Serious: Yes (Life-Threatening, Hospitalization, Other)
  Sender: FDA-Public Use
  Company Number: US-ACCORD-197432

PATIENT
  Age: 42 Year
  Sex: Female

DRUGS (3)
  1. ANAKINRA [Concomitant]
     Active Substance: ANAKINRA
     Indication: JUVENILE IDIOPATHIC ARTHRITIS
     Route: 058
  2. HYDROCORTISONE. [Concomitant]
     Active Substance: HYDROCORTISONE
     Indication: JUVENILE IDIOPATHIC ARTHRITIS
     Dosage: 20 MG EVERY MORNING AND 10 MG IN THE?AFTERNOON
  3. HYDROXYCHLOROQUINE [Suspect]
     Active Substance: HYDROXYCHLOROQUINE
     Indication: SYSTEMIC LUPUS ERYTHEMATOSUS

REACTIONS (1)
  - Myopathy toxic [Recovered/Resolved]
